FAERS Safety Report 4767627-9 (Version None)
Quarter: 2005Q3

REPORT INFORMATION
  Report Type: 
  Country: None (occurrence: None)
  Receive Date: 20050909
  Receipt Date: 20050826
  Transmission Date: 20060218
  Serious: Yes (Hospitalization)
  Sender: FDA-Public Use
  Company Number: HQWYE215231AUG05

PATIENT
  Age: 66 Year
  Sex: Male
  Weight: 111.68 kg

DRUGS (15)
  1. RAPAMUNE [Suspect]
     Indication: PROPHYLAXIS AGAINST TRANSPLANT REJECTION
     Dosage: SEE IMAGE
     Route: 048
     Dates: start: 20050504, end: 20050801
  2. RAPAMUNE [Suspect]
     Indication: PROPHYLAXIS AGAINST TRANSPLANT REJECTION
     Dosage: SEE IMAGE
     Route: 048
     Dates: start: 20050810, end: 20050823
  3. RAPAMUNE [Suspect]
     Indication: PROPHYLAXIS AGAINST TRANSPLANT REJECTION
     Dosage: SEE IMAGE
     Route: 048
     Dates: start: 20050824, end: 20050825
  4. RAPAMUNE [Suspect]
     Indication: PROPHYLAXIS AGAINST TRANSPLANT REJECTION
     Dosage: SEE IMAGE
     Route: 048
     Dates: start: 20050826
  5. CELLCEPT [Suspect]
     Indication: PROPHYLAXIS AGAINST TRANSPLANT REJECTION
     Dosage: 750 MG 2X PER 1 DAY, ORAL
     Route: 048
     Dates: start: 20050504
  6. PREDNISONE [Suspect]
     Indication: PROPHYLAXIS AGAINST TRANSPLANT REJECTION
     Dosage: SEE IMAGE
     Dates: start: 20050504, end: 20050828
  7. PREDNISONE [Suspect]
     Indication: PROPHYLAXIS AGAINST TRANSPLANT REJECTION
     Dosage: SEE IMAGE
     Dates: start: 20050829, end: 20050907
  8. BACTRIM [Concomitant]
  9. PROCARDIA XL [Concomitant]
  10. LISINOPRIL [Concomitant]
  11. LANTUS [Concomitant]
  12. LEVOBUNOLOL (LEVOBUNOLOL) [Concomitant]
  13. METOPROLOL TARTRATE [Concomitant]
  14. LIPITOR [Concomitant]
  15. ZENAPAX [Concomitant]

REACTIONS (4)
  - DRUG INEFFECTIVE [None]
  - IMMUNOSUPPRESSANT DRUG LEVEL DECREASED [None]
  - RENAL TUBULAR NECROSIS [None]
  - TRANSPLANT REJECTION [None]
